FAERS Safety Report 12274231 (Version 1)
Quarter: 2016Q2

REPORT INFORMATION
  Report Type: Spontaneous
  Country: US (occurrence: US)
  Receive Date: 20160415
  Receipt Date: 20160415
  Transmission Date: 20160815
  Serious: No
  Sender: FDA-Public Use
  Company Number: US-ALLERGAN-1509936US

PATIENT
  Sex: Female

DRUGS (2)
  1. LATISSE [Suspect]
     Active Substance: BIMATOPROST
     Indication: GROWTH OF EYELASHES
     Dosage: 2 GTT, QD
     Route: 003
     Dates: start: 20150115
  2. BIOTIN [Concomitant]
     Active Substance: BIOTIN
     Indication: ALOPECIA
     Dosage: UNK
     Route: 048
     Dates: start: 201502

REACTIONS (6)
  - Eye swelling [Not Recovered/Not Resolved]
  - Drug dose omission [Unknown]
  - Multiple use of single-use product [Unknown]
  - Madarosis [Not Recovered/Not Resolved]
  - Eye pruritus [Not Recovered/Not Resolved]
  - Trichorrhexis [Not Recovered/Not Resolved]
